FAERS Safety Report 24428427 (Version 1)
Quarter: 2024Q4

REPORT INFORMATION
  Report Type: Spontaneous
  Country: NL (occurrence: NL)
  Receive Date: 20241011
  Receipt Date: 20241011
  Transmission Date: 20250115
  Serious: No
  Sender: PFIZER
  Company Number: NL-PFIZER INC-PV202400131104

PATIENT

DRUGS (1)
  1. PAXLOVID [Suspect]
     Active Substance: NIRMATRELVIR\RITONAVIR
     Indication: Post-acute COVID-19 syndrome
     Dosage: 300/100MG, 2X/DAY

REACTIONS (3)
  - Intentional product misuse [Unknown]
  - Wrong technique in product usage process [Unknown]
  - Off label use [Unknown]
